FAERS Safety Report 9982001 (Version 2)
Quarter: 2014Q1

REPORT INFORMATION
  Report Type: Report from Study
  Country: US (occurrence: US)
  Receive Date: 20140307
  Receipt Date: 20140307
  Transmission Date: 20141002
  Serious: Yes (Other)
  Sender: FDA-Public Use
  Company Number: US-ABBVIE-13P-163-1128966-00

PATIENT
  Sex: Male

DRUGS (2)
  1. HUMIRA [Suspect]
     Indication: PSORIASIS
     Route: 058
     Dates: start: 20130320
  2. HUMIRA [Suspect]
     Route: 058
     Dates: start: 20130731

REACTIONS (3)
  - Basal cell carcinoma [Recovered/Resolved]
  - Herpes zoster [Recovered/Resolved]
  - Laryngitis [Unknown]
